FAERS Safety Report 9114750 (Version 4)
Quarter: 2013Q4

REPORT INFORMATION
  Report Type: Report from Study
  Country: US (occurrence: US)
  Receive Date: 20130128
  Receipt Date: 20131003
  Transmission Date: 20140711
  Serious: Yes (Hospitalization)
  Sender: FDA-Public Use
  Company Number: US-ACTELION-A-US2013-78027

PATIENT
  Age: 61 Year
  Sex: Male

DRUGS (4)
  1. TRACLEER [Suspect]
     Indication: PULMONARY ARTERIAL HYPERTENSION
     Dosage: UNK
     Route: 048
  2. ASPIRIN [Concomitant]
  3. COUMADIN [Concomitant]
  4. TYVASO [Concomitant]

REACTIONS (3)
  - Spinal fracture [Unknown]
  - Back disorder [Unknown]
  - Drug dose omission [Unknown]
